FAERS Safety Report 20519871 (Version 1)
Quarter: 2022Q1

REPORT INFORMATION
  Report Type: Spontaneous
  Country: US (occurrence: None)
  Receive Date: 20220225
  Receipt Date: 20220225
  Transmission Date: 20220423
  Serious: No
  Sender: FDA-Public Use
  Company Number: 2022A067007

PATIENT
  Sex: Male
  Weight: 77.1 kg

DRUGS (1)
  1. BEVESPI AEROSPHERE [Suspect]
     Active Substance: FORMOTEROL FUMARATE\GLYCOPYRROLATE
     Indication: Emphysema
     Dosage: 2 PUFFS IN THE MORNING AND EVENING
     Route: 055

REACTIONS (4)
  - Psoriasis [Recovered/Resolved]
  - Colitis ulcerative [Recovered/Resolved]
  - Incorrect dose administered by device [Recovered/Resolved]
  - Device malfunction [Unknown]
